FAERS Safety Report 7713589-1 (Version None)
Quarter: 2011Q3

REPORT INFORMATION
  Report Type: 
  Country: None (occurrence: None)
  Receive Date: 20110823
  Receipt Date: 20110812
  Transmission Date: 20111222
  Serious: Yes (Hospitalization)
  Sender: FDA-Public Use
  Company Number: TPA2011A04610

PATIENT
  Age: 83 Year
  Sex: Male
  Weight: 86.637 kg

DRUGS (1)
  1. ACTOS [Suspect]
     Indication: TYPE 2 DIABETES MELLITUS
     Dosage: STARTED 45 MG - 30 MG, ORALLY, QD
     Route: 048
     Dates: start: 20090220, end: 20110118

REACTIONS (1)
  - BLADDER CANCER [None]
